FAERS Safety Report 14255386 (Version 10)
Quarter: 2018Q3

REPORT INFORMATION
  Report Type: Report from Study
  Country: CA (occurrence: CA)
  Receive Date: 20171206
  Receipt Date: 20180918
  Transmission Date: 20181010
  Serious: Yes (Other)
  Sender: FDA-Public Use
  Company Number: CA-SA-2017SA241629

PATIENT
  Age: 44 Year
  Sex: Female

DRUGS (9)
  1. PARACETAMOL [Concomitant]
     Active Substance: ACETAMINOPHEN
     Indication: PREMEDICATION
     Dosage: 1000 MG,PRN
     Route: 048
     Dates: start: 20171127
  2. GRAVOL [Concomitant]
     Active Substance: DIMENHYDRINATE
     Indication: PREMEDICATION
     Dosage: 50 MG,UNK
     Route: 048
     Dates: start: 20171127, end: 20171129
  3. ACICLOVIR [Concomitant]
     Active Substance: ACYCLOVIR
     Indication: PREMEDICATION
     Dosage: 200 MG,BID
     Route: 048
     Dates: start: 20171127
  4. METHYLPREDNISOLONE. [Concomitant]
     Active Substance: METHYLPREDNISOLONE
     Indication: PREMEDICATION
     Dosage: 1 G,UNK
     Route: 042
     Dates: start: 20171127, end: 20171129
  5. ALEMTUZUMAB [Suspect]
     Active Substance: ALEMTUZUMAB
     Indication: RELAPSING-REMITTING MULTIPLE SCLEROSIS
     Dosage: 12 MG,QD
     Route: 041
     Dates: start: 20171127, end: 20171129
  6. BENADRYL [Concomitant]
     Active Substance: DIPHENHYDRAMINE HYDROCHLORIDE
     Indication: PREMEDICATION
     Dosage: 25 MG,PRN
     Route: 048
     Dates: start: 20171127
  7. RANITIDINE. [Concomitant]
     Active Substance: RANITIDINE
     Indication: PREMEDICATION
     Dosage: 150 MG,UNK
     Route: 048
     Dates: start: 20171127, end: 20171129
  8. PARACETAMOL [Concomitant]
     Active Substance: ACETAMINOPHEN
     Indication: PROPHYLAXIS
  9. MEFENAMIC ACID. [Concomitant]
     Active Substance: MEFENAMIC ACID
     Indication: PROPHYLAXIS
     Dosage: 400 MG,PRN
     Route: 048
     Dates: start: 20171127

REACTIONS (21)
  - Blood urine present [Recovered/Resolved]
  - Insomnia [Recovered/Resolved]
  - Chest discomfort [Recovered/Resolved]
  - Lymphocyte count decreased [Not Recovered/Not Resolved]
  - Dysphonia [Recovered/Resolved]
  - Headache [Recovered/Resolved]
  - Neutropenia [Recovered/Resolved]
  - Hypertension [Recovered/Resolved]
  - Peripheral swelling [Recovered/Resolved]
  - Tachycardia [Recovered/Resolved]
  - Monocyte count decreased [Recovered/Resolved]
  - Ocular discomfort [Recovered/Resolved]
  - Mean cell haemoglobin increased [Not Recovered/Not Resolved]
  - Chromaturia [Recovered/Resolved]
  - Red blood cell elliptocytes present [Not Recovered/Not Resolved]
  - Rhinorrhoea [Recovered/Resolved]
  - Photosensitivity reaction [Recovered/Resolved]
  - Pulmonary congestion [Recovered/Resolved]
  - Dyspnoea [Recovered/Resolved]
  - Red blood cell count decreased [Not Recovered/Not Resolved]
  - White blood cell count decreased [Not Recovered/Not Resolved]

NARRATIVE: CASE EVENT DATE: 20171127
